FAERS Safety Report 13233975 (Version 1)
Quarter: 2017Q1

REPORT INFORMATION
  Report Type: Spontaneous
  Country: US (occurrence: US)
  Receive Date: 20170215
  Receipt Date: 20170215
  Transmission Date: 20170428
  Serious: No
  Sender: FDA-Public Use
  Company Number: US-CIPLA LTD.-2016US18265

PATIENT

DRUGS (12)
  1. OMEPRAZOLE. [Concomitant]
     Active Substance: OMEPRAZOLE
     Indication: HIATUS HERNIA
     Dosage: 20 MG, BID
     Route: 065
  2. VITAMIN D [Concomitant]
     Active Substance: CHOLECALCIFEROL
     Indication: SUPPLEMENTATION THERAPY
     Dosage: 5000 UNITS, QD
     Route: 065
  3. METFORMIN [Concomitant]
     Active Substance: METFORMIN HYDROCHLORIDE
     Indication: TYPE 2 DIABETES MELLITUS
     Dosage: 500 MG, BID
     Route: 065
  4. POTASSIUM [Concomitant]
     Active Substance: POTASSIUM
     Indication: SUPPLEMENTATION THERAPY
     Dosage: 10 MEQ, QD
     Route: 065
  5. CHLORTHALIDONE. [Concomitant]
     Active Substance: CHLORTHALIDONE
     Indication: HYPERTENSION
     Dosage: 25 MG, QD
     Route: 065
  6. ASPIRIN. [Concomitant]
     Active Substance: ASPIRIN
     Indication: ARTERIOSCLEROSIS
     Dosage: 81 MG, DAILY
     Route: 065
  7. ATORVASTATIN [Concomitant]
     Active Substance: ATORVASTATIN
     Indication: HYPERCHOLESTEROLAEMIA
     Dosage: 10 MG, QOD
     Route: 065
  8. PLAVIX [Concomitant]
     Active Substance: CLOPIDOGREL BISULFATE
     Indication: COAGULOPATHY
     Dosage: 75 MG, QD
     Route: 065
  9. GABAPENTIN. [Suspect]
     Active Substance: GABAPENTIN
     Indication: FIBROMYALGIA
     Dosage: 100 MG, TID
     Route: 065
  10. GABAPENTIN. [Suspect]
     Active Substance: GABAPENTIN
     Indication: DIABETIC NEUROPATHY
  11. SYNTHROID [Concomitant]
     Active Substance: LEVOTHYROXINE SODIUM
     Indication: HYPOTHYROIDISM
     Dosage: 100 MCG, QD
     Route: 065
  12. LOSARTAN. [Concomitant]
     Active Substance: LOSARTAN
     Indication: HYPERTENSION
     Dosage: 50 MG, QD
     Route: 065

REACTIONS (2)
  - Drug ineffective [Unknown]
  - Somnolence [Unknown]
